FAERS Safety Report 12995906 (Version 2)
Quarter: 2017Q1

REPORT INFORMATION
  Report Type: Spontaneous
  Country: BE (occurrence: BE)
  Receive Date: 20161202
  Receipt Date: 20170123
  Transmission Date: 20170428
  Serious: Yes (Hospitalization, Disabling)
  Sender: FDA-Public Use
  Company Number: BE-ELI_LILLY_AND_COMPANY-BE201611008415

PATIENT
  Age: 26 Year
  Sex: Female
  Weight: 95 kg

DRUGS (2)
  1. ZYPADHERA [Suspect]
     Active Substance: OLANZAPINE PAMOATE
     Dosage: 300 MG, MONTHLY (1/M)
     Route: 065
     Dates: start: 201607
  2. ZYPADHERA [Suspect]
     Active Substance: OLANZAPINE PAMOATE
     Indication: SCHIZOPHRENIA
     Dosage: 405 MG, MONTHLY (1/M)
     Route: 065
     Dates: start: 201606, end: 201606

REACTIONS (8)
  - Confusional state [Recovered/Resolved]
  - Asthenia [Recovered/Resolved]
  - Tachycardia [Recovered/Resolved]
  - Dysarthria [Recovered/Resolved]
  - Urinary retention [Recovered/Resolved]
  - Sedation [Recovered/Resolved]
  - Delirium [Recovered/Resolved]
  - Hypertension [Recovered/Resolved]

NARRATIVE: CASE EVENT DATE: 20161116
